FAERS Safety Report 21909532 (Version 1)
Quarter: 2023Q1

REPORT INFORMATION
  Report Type: Spontaneous
  Country: US (occurrence: None)
  Receive Date: 20230125
  Receipt Date: 20230125
  Transmission Date: 20230418
  Serious: Yes (Hospitalization)
  Sender: FDA-Public Use
  Company Number: None

PATIENT
  Age: 63 Year
  Sex: Male
  Weight: 84.4 kg

DRUGS (14)
  1. APALUTAMIDE [Suspect]
     Active Substance: APALUTAMIDE
     Dates: end: 20230105
  2. LEUPROLIDE ACETATE [Suspect]
     Active Substance: LEUPROLIDE ACETATE
     Dates: end: 20221101
  3. APIXABAN [Concomitant]
     Active Substance: APIXABAN
  4. CICLOPIROX [Concomitant]
     Active Substance: CICLOPIROX
  5. COMPAZINE [Concomitant]
     Active Substance: PROCHLORPERAZINE MALEATE
  6. DITROPAN [Concomitant]
  7. GABAPENTIN [Concomitant]
     Active Substance: GABAPENTIN
  8. HYDROCHLOROTHIAZIDE [Concomitant]
     Active Substance: HYDROCHLOROTHIAZIDE
  9. LOVENOX [Concomitant]
     Active Substance: ENOXAPARIN SODIUM
  10. NARCAN [Concomitant]
  11. OXYCODONE [Concomitant]
     Active Substance: OXYCODONE
  12. PYRIDIUM [Concomitant]
     Active Substance: PHENAZOPYRIDINE
  13. VIAGRA [Concomitant]
     Active Substance: SILDENAFIL CITRATE
  14. ZOFRAN [Concomitant]
     Active Substance: ONDANSETRON HYDROCHLORIDE

REACTIONS (2)
  - Pelvic pain [None]
  - Pelvic infection [None]

NARRATIVE: CASE EVENT DATE: 20230110
